FAERS Safety Report 22720974 (Version 5)
Quarter: 2023Q4

REPORT INFORMATION
  Report Type: Report from Study
  Country: DE (occurrence: DE)
  Receive Date: 20230719
  Receipt Date: 20231113
  Transmission Date: 20240109
  Serious: Yes (Other)
  Sender: FDA-Public Use
  Company Number: DE-BLUEBIRD BIO-DE-BBB-23-00050

PATIENT
  Age: 11 Year
  Weight: 36 kg

DRUGS (15)
  1. ELIVALDOGENE AUTOTEMCEL [Suspect]
     Active Substance: ELIVALDOGENE AUTOTEMCEL
     Indication: Adrenoleukodystrophy
     Dosage: 9.6 X 10^6 CD34+ CELLS/KG, SINGLE
     Route: 042
     Dates: start: 20210126, end: 20210126
  2. BUSULFAN [Concomitant]
     Active Substance: BUSULFAN
     Indication: Bone marrow conditioning regimen
     Dosage: UNK UNK, QD
     Dates: start: 20210120, end: 20210123
  3. FLUDARABINE [Concomitant]
     Active Substance: FLUDARABINE PHOSPHATE
     Indication: Bone marrow conditioning regimen
     Dosage: UNK, QD
     Dates: start: 20210120, end: 20210123
  4. PLERIXAFOR [Concomitant]
     Active Substance: PLERIXAFOR
     Indication: Haematopoietic stem cell mobilisation
     Dosage: UNK, QD, CYCLE 1
     Route: 058
     Dates: start: 20201211, end: 20201215
  5. HYDROCORTISONE [Concomitant]
     Active Substance: HYDROCORTISONE
     Indication: Addison^s disease
     Dosage: UNK
     Route: 048
     Dates: start: 20210222
  6. FLUDROCORTISONE [Concomitant]
     Active Substance: FLUDROCORTISONE
     Indication: Addison^s disease
     Dosage: UNK
     Route: 048
     Dates: start: 20210222
  7. SUMMAVIT [VITAMINS NOS] [Concomitant]
     Indication: Prophylaxis
     Dosage: UNK
     Route: 048
     Dates: start: 20210222
  8. VITAMIN D NOS [Concomitant]
     Active Substance: VITAMIN D NOS
     Indication: Hypovitaminosis
     Dosage: UNK
     Route: 048
     Dates: start: 2018
  9. MAGNESIUM [Concomitant]
     Active Substance: MAGNESIUM
     Indication: Hypovitaminosis
     Dosage: UNK
     Route: 048
     Dates: start: 202207
  10. L-CARNITINA [LEVOCARNITINE] [Concomitant]
     Indication: Hypovitaminosis
     Dosage: UNK
     Route: 048
     Dates: start: 202207
  11. FISH OIL [Concomitant]
     Active Substance: FISH OIL
     Indication: Hypovitaminosis
     Dosage: UNK
     Route: 048
     Dates: start: 202207
  12. LECITHIN [Concomitant]
     Active Substance: LECITHIN
     Indication: Hypovitaminosis
     Dosage: UNK
     Route: 048
     Dates: start: 202207
  13. VITAMIN C [Concomitant]
     Active Substance: ASCORBIC ACID
     Indication: Hypovitaminosis
     Dosage: UNK
     Route: 048
     Dates: start: 2017
  14. RIBOFLAVIN [Concomitant]
     Active Substance: RIBOFLAVIN
     Indication: Hypovitaminosis
     Dosage: UNK
     Route: 048
     Dates: start: 202211
  15. CYANOCOBALAMIN [Concomitant]
     Active Substance: CYANOCOBALAMIN
     Indication: Hypovitaminosis
     Dosage: UNK
     Route: 048
     Dates: start: 202211

REACTIONS (1)
  - Myelodysplastic syndrome with excess blasts [Recovered/Resolved]

NARRATIVE: CASE EVENT DATE: 20230524
